FAERS Safety Report 7786420-6 (Version None)
Quarter: 2011Q3

REPORT INFORMATION
  Report Type: 
  Country: None (occurrence: None)
  Receive Date: 20110927
  Receipt Date: 20110927
  Transmission Date: 20111222
  Serious: Yes (Life-Threatening)
  Sender: FDA-Public Use
  Company Number: None

PATIENT
  Age: 71 Year
  Sex: Female
  Weight: 68.0396 kg

DRUGS (1)
  1. GABAPENTIN [Suspect]
     Indication: ARTHRITIS
     Dates: start: 20110514

REACTIONS (5)
  - HALLUCINATION, AUDITORY [None]
  - SCREAMING [None]
  - JOINT LOCK [None]
  - SCRATCH [None]
  - CRYING [None]
